FAERS Safety Report 15665846 (Version 1)
Quarter: 2018Q4

REPORT INFORMATION
  Report Type: Spontaneous
  Country: US (occurrence: US)
  Receive Date: 20181116
  Receipt Date: 20181116
  Transmission Date: 20190205
  Serious: Yes (Death)
  Sender: FDA-Public Use
  Company Number: None

PATIENT
  Age: 82 Year
  Sex: Female
  Weight: 62.05 kg

DRUGS (1)
  1. NEULASTA [Suspect]
     Active Substance: PEGFILGRASTIM
     Dates: end: 20171116

REACTIONS (4)
  - Hypoaesthesia [None]
  - Mental status changes [None]
  - Tachypnoea [None]
  - Hypoventilation [None]

NARRATIVE: CASE EVENT DATE: 20171209
